FAERS Safety Report 10026894 (Version 1)
Quarter: 2014Q1

REPORT INFORMATION
  Report Type: Spontaneous
  Country: FR (occurrence: FR)
  Receive Date: 20140321
  Receipt Date: 20140321
  Transmission Date: 20141002
  Serious: Yes (Hospitalization)
  Sender: FDA-Public Use
  Company Number: FR-JNJFOC-20140307948

PATIENT
  Age: 78 Year
  Sex: Female

DRUGS (14)
  1. DUROGESIC [Suspect]
     Indication: PRODUCT USED FOR UNKNOWN INDICATION
     Dosage: SINCE SOME WEEKS
     Route: 062
  2. COUMADINE [Suspect]
     Indication: PRODUCT USED FOR UNKNOWN INDICATION
     Route: 048
     Dates: end: 2013
  3. ACTISKENAN [Suspect]
     Indication: PRODUCT USED FOR UNKNOWN INDICATION
     Route: 065
  4. METOJECT [Concomitant]
     Route: 065
  5. TRANSIPEG [Concomitant]
     Dosage: 1 SACK IN THE MORNING
     Route: 065
  6. INEXIUM [Concomitant]
     Route: 065
  7. TEMESTA [Concomitant]
     Route: 065
  8. CORTANCYL [Concomitant]
     Route: 065
  9. FLECAINE [Concomitant]
     Route: 065
  10. DIFFU K [Concomitant]
     Route: 065
  11. SOTALOL HCI [Concomitant]
     Route: 065
  12. FUROSEMIDE [Concomitant]
     Dosage: 1 TABLET IN THE MORNING 0.5 TABLET IN THE AFTERNOON
     Route: 065
  13. PARACETAMOL [Concomitant]
     Indication: PAIN
     Route: 065
  14. STILNOX [Concomitant]
     Route: 065

REACTIONS (1)
  - International normalised ratio increased [Recovered/Resolved]
